FAERS Safety Report 9623786 (Version 3)
Quarter: 2013Q4

REPORT INFORMATION
  Report Type: Spontaneous
  Country: JP (occurrence: JP)
  Receive Date: 20131015
  Receipt Date: 20131118
  Transmission Date: 20140711
  Serious: Yes (Death, Hospitalization, Other)
  Sender: FDA-Public Use
  Company Number: JP-BAYER-2013-118938

PATIENT
  Age: 65 Year
  Sex: Male
  Weight: 54 kg

DRUGS (4)
  1. STIVARGA [Suspect]
     Indication: RECTAL CANCER
     Dosage: 160 MG, QD, ON FOR 3 WEEKS AND OFF FOR 1 WEEK
     Route: 048
     Dates: start: 20130611, end: 20130701
  2. MINOMYCIN [Concomitant]
     Dosage: DAILY DOSE 100 MG
     Route: 048
     Dates: start: 20120711, end: 20130715
  3. GABAPENTIN [Concomitant]
     Dosage: DAILY DOSE 1800 MG
     Route: 048
     Dates: end: 20130731
  4. VALERIN [Concomitant]
     Dosage: DAILY DOSE 1200 MG
     Route: 048
     Dates: end: 20130723

REACTIONS (3)
  - Liver disorder [Fatal]
  - Disseminated intravascular coagulation [Fatal]
  - Palmar-plantar erythrodysaesthesia syndrome [Recovered/Resolved]
